FAERS Safety Report 5546954-1 (Version None)
Quarter: 2007Q4

REPORT INFORMATION
  Report Type: 
  Country: None (occurrence: None)
  Receive Date: 20071211
  Receipt Date: 20071206
  Transmission Date: 20080405
  Serious: Yes (Hospitalization)
  Sender: FDA-Public Use
  Company Number: JP-ASTRAZENECA-2007AP07811

PATIENT
  Age: 40 Year
  Sex: Male

DRUGS (3)
  1. OMEPRAL [Suspect]
     Route: 048
     Dates: start: 20061201
  2. URSO 250 [Suspect]
     Dosage: DOSE UNKNOWN
     Route: 048
  3. DIOVAN [Suspect]
     Dosage: DOSE UNKNOWN
     Route: 048

REACTIONS (1)
  - HYPOKALAEMIA [None]
